FAERS Safety Report 6201585-5 (Version None)
Quarter: 2009Q2

REPORT INFORMATION
  Report Type: 
  Country: None (occurrence: None)
  Receive Date: 20090513
  Receipt Date: 20090428
  Transmission Date: 20091009
  Serious: Yes (Hospitalization)
  Sender: FDA-Public Use
  Company Number: 20090428CINRY0911

PATIENT
  Age: 47 Year
  Sex: Female

DRUGS (1)
  1. CINRYZE [Suspect]
     Dosage: HEREDITARY ANGIOEDEMA [10019860 - HEREDITARY ANGIOEDEMA]

REACTIONS (5)
  - CATHETER THROMBOSIS [None]
  - CHEST PAIN [None]
  - OEDEMA PERIPHERAL [None]
  - PAIN IN EXTREMITY [None]
  - SENSATION OF HEAVINESS [None]
